FAERS Safety Report 24861390 (Version 1)
Quarter: 2025Q1

REPORT INFORMATION
  Report Type: Spontaneous
  Country: CN (occurrence: CN)
  Receive Date: 20250120
  Receipt Date: 20250120
  Transmission Date: 20250409
  Serious: Yes (Other)
  Sender: ROCHE
  Company Number: CN-CHEPLA-2024014777

PATIENT
  Age: 65 Year
  Sex: Female
  Weight: 46 kg

DRUGS (2)
  1. AVASTIN [Suspect]
     Active Substance: BEVACIZUMAB
     Indication: Colon cancer stage IV
     Dosage: ROA-IVGTT, APPROVAL NO. GYZZ S20190040
     Route: 042
     Dates: start: 20241114, end: 20241114
  2. CAPECITABINE [Suspect]
     Active Substance: CAPECITABINE
     Indication: Colon cancer stage IV
     Dosage: APPROVAL NO. GYZZ H20073024
     Route: 048
     Dates: start: 20241114, end: 20241118

REACTIONS (2)
  - Peripheral nerve injury [Unknown]
  - Paraesthesia [Unknown]

NARRATIVE: CASE EVENT DATE: 20241118
